FAERS Safety Report 9819836 (Version 1)
Quarter: 2013Q1

REPORT INFORMATION
  Report Type: Spontaneous
  Country: US (occurrence: None)
  Receive Date: 20130107
  Receipt Date: 20130107
  Transmission Date: 20140127
  Serious: No
  Sender: FDA-Public Use
  Company Number: PHEH2012US018935

PATIENT
  Age: 46 Year
  Sex: Female

DRUGS (1)
  1. GILENYA (FTY) CAPSULE, 0.5MG [Suspect]
     Route: 048

REACTIONS (2)
  - Full blood count decreased [None]
  - Hypertension [None]
